FAERS Safety Report 6343281-X (Version None)
Quarter: 2009Q3

REPORT INFORMATION
  Report Type: 
  Country: None (occurrence: None)
  Receive Date: 20090908
  Receipt Date: 20090827
  Transmission Date: 20100115
  Serious: Yes (Hospitalization)
  Sender: FDA-Public Use
  Company Number: PHHY2009GB37178

PATIENT
  Sex: Female

DRUGS (3)
  1. CLOZAPINE [Suspect]
  2. CARBAMAZEPINE [Suspect]
  3. MIRTAZAPINE [Suspect]

REACTIONS (2)
  - ANTIPSYCHOTIC DRUG LEVEL [None]
  - MALAISE [None]
